FAERS Safety Report 11271455 (Version 1)
Quarter: 2015Q3

REPORT INFORMATION
  Report Type: Spontaneous
  Country: US (occurrence: US)
  Receive Date: 20150714
  Receipt Date: 20150714
  Transmission Date: 20151125
  Serious: Yes (Other)
  Sender: FDA-Public Use
  Company Number: US-BAUSCH-BL-2015-016542

PATIENT
  Sex: Male
  Weight: 8 kg

DRUGS (1)
  1. DIASTAT ACUDIAL [Suspect]
     Active Substance: DIAZEPAM
     Indication: COMPLEX PARTIAL SEIZURES

REACTIONS (3)
  - Respiratory depression [Recovered/Resolved]
  - Accidental overdose [Unknown]
  - Drug dispensing error [Unknown]
